FAERS Safety Report 13463938 (Version 1)
Quarter: 2017Q2

REPORT INFORMATION
  Report Type: Spontaneous
  Country: US (occurrence: US)
  Receive Date: 20170420
  Receipt Date: 20170420
  Transmission Date: 20170830
  Serious: Yes (Other)
  Sender: FDA-Public Use
  Company Number: US-ROCHE-721642

PATIENT
  Age: 16 Year
  Sex: Male

DRUGS (2)
  1. MINOCIN [Concomitant]
     Active Substance: MINOCYCLINE HYDROCHLORIDE
     Indication: ACNE
     Route: 065
     Dates: start: 19850517, end: 19850820
  2. ACCUTANE [Suspect]
     Active Substance: ISOTRETINOIN
     Indication: ACNE
     Route: 065
     Dates: start: 19850517, end: 19851004

REACTIONS (4)
  - Colitis ulcerative [Unknown]
  - Blood alkaline phosphatase increased [Recovered/Resolved]
  - Inflammatory bowel disease [Unknown]
  - Blood triglycerides increased [Recovered/Resolved]

NARRATIVE: CASE EVENT DATE: 19850617
